FAERS Safety Report 5359331-3 (Version None)
Quarter: 2007Q2

REPORT INFORMATION
  Report Type: 
  Country: None (occurrence: None)
  Receive Date: 20070615
  Receipt Date: 20070613
  Transmission Date: 20071010
  Serious: Yes (Life-Threatening, Other)
  Sender: FDA-Public Use
  Company Number: US-BOEHRINGER INGELHEIM PHARMACEUTICALS, INC.-1997-BP-01901

PATIENT
  Sex: Female

DRUGS (10)
  1. VIRAMUNE [Suspect]
     Indication: HIV INFECTION
     Route: 048
     Dates: start: 19970721, end: 19970829
  2. FENTANYL [Concomitant]
  3. VERSED [Concomitant]
  4. ZIDOVUDINE [Concomitant]
     Route: 048
     Dates: start: 19970721, end: 19970829
  5. LAMIVUDINE [Concomitant]
     Route: 048
     Dates: start: 19970721, end: 19970829
  6. SEPTRA [Concomitant]
  7. INH [Concomitant]
  8. AUGMENTIN '125' [Concomitant]
     Dates: start: 19970825
  9. TYLENOL [Concomitant]
  10. CEFOTAXIME [Concomitant]
     Route: 042

REACTIONS (4)
  - BLOOD CREATININE INCREASED [None]
  - OTITIS MEDIA [None]
  - RENAL FAILURE ACUTE [None]
  - SEPSIS [None]
